FAERS Safety Report 9455167 (Version 1)
Quarter: 2013Q1

REPORT INFORMATION
  Report Type: Spontaneous
  Country: KR (occurrence: None)
  Receive Date: 20130212
  Receipt Date: 20130212
  Transmission Date: 20140127
  Serious: Yes (Hospitalization, Other)
  Sender: FDA-Public Use
  Company Number: 2007-03166

PATIENT
  Age: 75 Year
  Sex: Male

DRUGS (3)
  1. OXALIPLATIN (ATLLC) [Suspect]
     Dates: start: 2006, end: 2006
  2. FLUOROURACIL (FLUOROURACIL) [Suspect]
     Dates: start: 2006, end: 2006
  3. LEUCOVORIN [Suspect]
     Dates: start: 2006, end: 2006

REACTIONS (2)
  - Diffuse alveolar damage [None]
  - Interstitial lung disease [None]
